APPROVED DRUG PRODUCT: OXILAN-350
Active Ingredient: IOXILAN
Strength: 73%
Dosage Form/Route: INJECTABLE;INJECTION
Application: N020316 | Product #002
Applicant: GUERBET LLC
Approved: Dec 21, 1995 | RLD: No | RS: No | Type: DISCN